FAERS Safety Report 9016366 (Version 5)
Quarter: 2013Q1

REPORT INFORMATION
  Report Type: Report from Study
  Country: US (occurrence: US)
  Receive Date: 20130116
  Receipt Date: 20130320
  Transmission Date: 20140127
  Serious: Yes (Hospitalization)
  Sender: FDA-Public Use
  Company Number: US-ROCHE-1178289

PATIENT
  Age: 84 Year
  Sex: Female
  Weight: 63.11 kg

DRUGS (10)
  1. CAPECITABINE [Suspect]
     Indication: BILE DUCT CANCER
     Route: 048
     Dates: start: 20120522, end: 20130106
  2. BEVACIZUMAB [Suspect]
     Indication: BILE DUCT CANCER
     Route: 042
     Dates: start: 20120522, end: 20130103
  3. GEMCITABINE [Suspect]
     Indication: BILE DUCT CANCER
     Route: 042
     Dates: start: 20120522, end: 20130103
  4. CIPROFLOXACIN [Concomitant]
     Route: 065
     Dates: start: 20130103, end: 20130106
  5. FUROSEMIDE [Concomitant]
     Route: 065
     Dates: start: 20121119
  6. LOPERAMIDE [Concomitant]
     Route: 065
  7. PROCHLORPERAZINE [Concomitant]
     Route: 065
     Dates: start: 20120522
  8. LORAZEPAM [Concomitant]
     Route: 065
     Dates: start: 20120522
  9. AMLODIPINE [Concomitant]
     Route: 065
     Dates: start: 20120416
  10. LEVAQUIN [Concomitant]
     Route: 065
     Dates: start: 20130127

REACTIONS (4)
  - Pleural effusion [Recovering/Resolving]
  - Diastolic dysfunction [Unknown]
  - Mental status changes [Unknown]
  - Confusional state [Unknown]
